FAERS Safety Report 23898933 (Version 1)
Quarter: 2024Q2

REPORT INFORMATION
  Report Type: Spontaneous
  Country: JP (occurrence: JP)
  Receive Date: 20240525
  Receipt Date: 20240525
  Transmission Date: 20240716
  Serious: Yes (Other)
  Sender: FDA-Public Use
  Company Number: JP-BAYER-2024A074394

PATIENT
  Age: 9 Decade
  Sex: Male

DRUGS (1)
  1. XARELTO [Suspect]
     Active Substance: RIVAROXABAN
     Indication: Atrial fibrillation
     Dosage: DAILY DOSE 15 MG
     Route: 048

REACTIONS (2)
  - Injury [Not Recovered/Not Resolved]
  - Traumatic haematoma [Not Recovered/Not Resolved]
